FAERS Safety Report 23350388 (Version 1)
Quarter: 2023Q4

REPORT INFORMATION
  Report Type: Spontaneous
  Country: CA (occurrence: CA)
  Receive Date: 20231229
  Receipt Date: 20231229
  Transmission Date: 20240109
  Serious: Yes (Other)
  Sender: FDA-Public Use
  Company Number: CA-SANDOZ-SDZ2023CA073314

PATIENT
  Sex: Male

DRUGS (3)
  1. ABIRATERONE ACETATE [Suspect]
     Active Substance: ABIRATERONE ACETATE
     Indication: Prostate cancer
     Dosage: 1000 MG, QD
     Route: 065
  2. LEUPROLIDE ACETATE [Suspect]
     Active Substance: LEUPROLIDE ACETATE
     Indication: Prostate cancer
     Dosage: 22.5 MG, Q3MO
     Route: 058
  3. PREDNISONE [Suspect]
     Active Substance: PREDNISONE
     Indication: Prostate cancer
     Dosage: 5 MG 1 EVERY 5 DAYS
     Route: 065

REACTIONS (1)
  - Hepatotoxicity [Unknown]
